FAERS Safety Report 14027150 (Version 1)
Quarter: 2017Q3

REPORT INFORMATION
  Report Type: Spontaneous
  Country: US (occurrence: US)
  Receive Date: 20170929
  Receipt Date: 20170929
  Transmission Date: 20171128
  Serious: No
  Sender: FDA-Public Use
  Company Number: US-NOVEN PHARMACEUTICALS, INC.-US2017000226

PATIENT

DRUGS (4)
  1. ZYRTEC [Concomitant]
     Active Substance: CETIRIZINE HYDROCHLORIDE
  2. WELLBUTRIN [Concomitant]
     Active Substance: BUPROPION HYDROCHLORIDE
  3. COMBIPATCH [Suspect]
     Active Substance: ESTRADIOL\NORETHINDRONE ACETATE
     Dosage: 0.05/0.25 MG, UNKNOWN
     Route: 062
     Dates: start: 201701, end: 201701
  4. COMBIPATCH [Suspect]
     Active Substance: ESTRADIOL\NORETHINDRONE ACETATE
     Indication: HORMONE REPLACEMENT THERAPY
     Dosage: 0.05/0.14 MG, UNKNOWN
     Route: 062
     Dates: start: 2015, end: 201701

REACTIONS (5)
  - Application site erythema [Unknown]
  - Drug dose omission [Not Recovered/Not Resolved]
  - Application site pruritus [Unknown]
  - Night sweats [Not Recovered/Not Resolved]
  - Application site swelling [Unknown]

NARRATIVE: CASE EVENT DATE: 201701
